FAERS Safety Report 18399507 (Version 1)
Quarter: 2020Q4

REPORT INFORMATION
  Report Type: Spontaneous
  Country: IT (occurrence: IT)
  Receive Date: 20201019
  Receipt Date: 20201019
  Transmission Date: 20210114
  Serious: Yes (Life-Threatening, Other)
  Sender: FDA-Public Use
  Company Number: IT-PFIZER INC-2020398125

PATIENT
  Age: 52 Year
  Sex: Female

DRUGS (2)
  1. EPIRUBICIN HCL [Suspect]
     Active Substance: EPIRUBICIN HYDROCHLORIDE
     Indication: BREAST CANCER
     Dosage: 75 MG/M2, CYCLIC (EVERY 3 WEEKS FOR 5 CYCLES)
     Dates: start: 200505, end: 200507
  2. PACLITAXEL. [Concomitant]
     Active Substance: PACLITAXEL
     Indication: BREAST CANCER
     Dosage: 175 MG/M2, CYCLIC (EVERY 3 WEEKS FOR 5 CYCLES)
     Dates: start: 200505, end: 200507

REACTIONS (1)
  - Cardiac perfusion defect [Unknown]
